FAERS Safety Report 7602300-0 (Version None)
Quarter: 2011Q3

REPORT INFORMATION
  Report Type: 
  Country: None (occurrence: None)
  Receive Date: 20110711
  Receipt Date: 20110627
  Transmission Date: 20111222
  Serious: Yes (Hospitalization)
  Sender: FDA-Public Use
  Company Number: CA-MYLANLABS-2011S1013578

PATIENT
  Age: 45 Year
  Sex: Female

DRUGS (4)
  1. OXYCET [Suspect]
     Indication: BACK PAIN
     Dosage: 325MG/5MG FOUR TIMES DAILY
     Route: 065
  2. METHYLPREDNISOLONE [Suspect]
     Route: 008
  3. METHYLPREDNISOLONE [Suspect]
     Dosage: FACET JOINT INFECTION
     Route: 014
  4. FENTANYL-100 [Suspect]
     Indication: BACK PAIN
     Dosage: 175 MICROG/HR EVERY 48 HOURS
     Route: 062

REACTIONS (1)
  - ADRENAL INSUFFICIENCY [None]
